FAERS Safety Report 10051126 (Version 2)
Quarter: 2014Q2

REPORT INFORMATION
  Report Type: Spontaneous
  Country: DE (occurrence: DE)
  Receive Date: 20140401
  Receipt Date: 20140415
  Transmission Date: 20141212
  Serious: Yes (Hospitalization)
  Sender: FDA-Public Use
  Company Number: DE-EISAI INC-E2007-01590-SPO-DE

PATIENT
  Age: 22 Year
  Sex: Female
  Weight: 86 kg

DRUGS (9)
  1. FYCOMPA (PERAMPANEL) [Suspect]
     Indication: EPILEPSY
     Dosage: UNKNOWN
     Route: 048
     Dates: start: 201308, end: 2013
  2. FYCOMPA (PERAMPANEL) [Suspect]
     Dosage: 6 MG/DAY
     Route: 048
     Dates: start: 2013, end: 201309
  3. FYCOMPA (PERAMPANEL) [Suspect]
     Dosage: UNKNOWN
     Route: 048
     Dates: start: 201310, end: 2013
  4. FYCOMPA (PERAMPANEL) [Suspect]
     Dosage: 4 MG/DAY
     Route: 048
     Dates: start: 2013, end: 201312
  5. LAMOTRIGINE [Concomitant]
     Indication: EPILEPSY
     Dosage: 600 MG/DAY
     Route: 048
  6. ZONEGRAN [Concomitant]
     Indication: EPILEPSY
     Dosage: 400 MG/DAY
     Route: 048
  7. LEVOTHYROXINE SODIUM [Concomitant]
     Indication: HYPOTHYROIDISM
     Dosage: 75 MG/DAY
     Route: 048
  8. MELPERON HCL [Concomitant]
     Indication: ABNORMAL BEHAVIOUR
     Dosage: 50 MG/DAY
     Route: 048
  9. VOTUBIA [Concomitant]
     Indication: TUBEROUS SCLEROSIS
     Dosage: 5 MG/DAY
     Route: 048

REACTIONS (6)
  - Psychotic behaviour [Recovered/Resolved]
  - Cognitive disorder [Recovered/Resolved]
  - Altered state of consciousness [Recovered/Resolved]
  - Sleep disorder [Recovered/Resolved]
  - Restlessness [Recovered/Resolved]
  - Personality change [Recovered/Resolved]
